FAERS Safety Report 18079974 (Version 1)
Quarter: 2020Q3

REPORT INFORMATION
  Report Type: Spontaneous
  Country: US (occurrence: US)
  Receive Date: 20200728
  Receipt Date: 20200728
  Transmission Date: 20201103
  Serious: Yes (Hospitalization)
  Sender: FDA-Public Use
  Company Number: US-STRIDES ARCOLAB LIMITED-2020SP002455

PATIENT
  Age: 62 Year
  Sex: Male

DRUGS (9)
  1. MYCOPHENOLATE MOFETIL. [Suspect]
     Active Substance: MYCOPHENOLATE MOFETIL
     Dosage: 750 MILLIGRAM TWICE DAILY WAS CONTINUED FOR A TOTAL 5 MONTHS
     Route: 065
  2. PREDNISOLONE. [Suspect]
     Active Substance: PREDNISOLONE
     Dosage: UNK , DOSE TAPERING OVER A MONTH.
     Route: 048
  3. METHYLPREDNISOLONE. [Suspect]
     Active Substance: METHYLPREDNISOLONE
     Dosage: 1 MILLIGRAM/KILOGRAM, BID,
     Route: 065
  4. METHYLPREDNISOLONE. [Suspect]
     Active Substance: METHYLPREDNISOLONE
     Dosage: TAPERED OFF IN 2 MONTHS
     Route: 065
  5. PREDNISOLONE. [Suspect]
     Active Substance: PREDNISOLONE
     Indication: AUTOIMMUNE HEPATITIS
     Dosage: 60 MILLIGRAM PER DAY WITH DOSE TAPERING OVER A MONTH
     Route: 048
  6. METHYLPREDNISOLONE. [Suspect]
     Active Substance: METHYLPREDNISOLONE
     Indication: AUTOIMMUNE HEPATITIS
     Dosage: 1 MILLIGRAM/KILOGRAM TWICE DAILY
     Route: 042
  7. MYCOPHENOLATE MOFETIL. [Suspect]
     Active Substance: MYCOPHENOLATE MOFETIL
     Indication: AUTOIMMUNE HEPATITIS
     Dosage: 500 MILLIGRAM TWICE DAILY
     Route: 048
  8. MYCOPHENOLATE MOFETIL. [Suspect]
     Active Substance: MYCOPHENOLATE MOFETIL
     Dosage: 750 MILLIGRAM TWICE DAILY
     Route: 048
  9. RITUXIMAB. [Concomitant]
     Active Substance: RITUXIMAB
     Indication: METASTATIC RENAL CELL CARCINOMA
     Dosage: 375 MILLIGRAM/SQ. METER TWO DOSE EVERY 3 WEEKS
     Route: 065

REACTIONS (8)
  - Aspergillus infection [Recovered/Resolved]
  - Oedema [Recovered/Resolved]
  - Subcutaneous abscess [Recovered/Resolved]
  - Necrotising soft tissue infection [Recovered/Resolved]
  - Erythema [Recovered/Resolved]
  - Pain [Recovered/Resolved]
  - Necrotising fasciitis [Recovered/Resolved]
  - Eschar [Recovered/Resolved]
